FAERS Safety Report 6008083-2 (Version None)
Quarter: 2008Q4

REPORT INFORMATION
  Report Type: 
  Country: None (occurrence: None)
  Receive Date: 20081217
  Receipt Date: 20080818
  Transmission Date: 20090506
  Serious: No
  Sender: FDA-Public Use
  Company Number: US-ASTRAZENECA-2008UW16811

PATIENT
  Age: 68 Year
  Sex: Male
  Weight: 74.8 kg

DRUGS (4)
  1. CRESTOR [Suspect]
     Route: 048
     Dates: start: 20080715, end: 20080728
  2. PLAVIX [Concomitant]
  3. ENALAPRIL MALEATE [Concomitant]
  4. PINDOLOL [Concomitant]

REACTIONS (2)
  - MUSCLE SPASMS [None]
  - MUSCULAR WEAKNESS [None]
